FAERS Safety Report 9373681 (Version 1)
Quarter: 2013Q2

REPORT INFORMATION
  Report Type: Spontaneous
  Country: NZ (occurrence: NZ)
  Receive Date: 20130627
  Receipt Date: 20130627
  Transmission Date: 20140414
  Serious: Yes (Disabling)
  Sender: FDA-Public Use
  Company Number: NZ-BAXTER-2013BAX022737

PATIENT
  Sex: Female

DRUGS (1)
  1. DIANEAL PD-4 PERITONEAL DIALYSIS SOLUTION WITH 1.5% W_V GLUCOSE LOW CA [Suspect]
     Indication: PERITONEAL DIALYSIS
     Route: 033

REACTIONS (1)
  - Deafness [Unknown]
